FAERS Safety Report 7639312-7 (Version None)
Quarter: 2011Q3

REPORT INFORMATION
  Report Type: 
  Country: None (occurrence: None)
  Receive Date: 20110727
  Receipt Date: 20110718
  Transmission Date: 20111222
  Serious: Yes (Death, Hospitalization)
  Sender: FDA-Public Use
  Company Number: US-ACTELION-A-NJ2011-49889

PATIENT

DRUGS (3)
  1. TRACLEER [Suspect]
     Indication: PULMONARY ARTERIAL HYPERTENSION
     Dosage: UNK
     Route: 048
     Dates: start: 20110101, end: 20110708
  2. VENTAVIS [Suspect]
     Indication: PULMONARY ARTERIAL HYPERTENSION
     Dosage: UNK
     Route: 055
     Dates: start: 20110512, end: 20110101
  3. TRACLEER [Suspect]
     Dosage: UNK
     Route: 048
     Dates: start: 20110225, end: 20110101

REACTIONS (5)
  - RESPIRATORY TRACT INFECTION [None]
  - DYSPNOEA [None]
  - DEATH [None]
  - BRONCHITIS [None]
  - PNEUMONIA [None]
